FAERS Safety Report 5450412-2 (Version None)
Quarter: 2007Q3

REPORT INFORMATION
  Report Type: 
  Country: None (occurrence: None)
  Receive Date: 20070912
  Receipt Date: 20070907
  Transmission Date: 20080115
  Serious: Yes (Life-Threatening)
  Sender: FDA-Public Use
  Company Number: JP-SHR-JP-2007-029452

PATIENT
  Age: 31 Year
  Sex: Female
  Weight: 48 kg

DRUGS (1)
  1. MAGNEVIST [Suspect]
     Dosage: 10 ML, 1 DOSE
     Route: 042
     Dates: start: 20070807, end: 20070807

REACTIONS (6)
  - ANAPHYLACTOID SHOCK [None]
  - BLOOD PRESSURE IMMEASURABLE [None]
  - FEELING ABNORMAL [None]
  - LOSS OF CONSCIOUSNESS [None]
  - OXYGEN SATURATION DECREASED [None]
  - PALLOR [None]
